FAERS Safety Report 25142521 (Version 1)
Quarter: 2025Q1

REPORT INFORMATION
  Report Type: Spontaneous
  Country: ES (occurrence: ES)
  Receive Date: 20250331
  Receipt Date: 20250331
  Transmission Date: 20250408
  Serious: Yes (Other)
  Sender: MYLAN
  Company Number: ES-LABALTER-202500922

PATIENT
  Age: 40 Year
  Sex: Male

DRUGS (5)
  1. ARIPIPRAZOLE [Suspect]
     Active Substance: ARIPIPRAZOLE
     Indication: Affective disorder
     Dosage: 5 MILLIGRAM, QD (1-0-0)
  2. VENLAFAXINE [Concomitant]
     Active Substance: VENLAFAXINE HYDROCHLORIDE
     Indication: Affective disorder
     Dosage: 300 MILLIGRAM, QD (VENLAFAXINE 300 MG RETARD. 1-0-0.)
  3. MIRTAZAPINE [Concomitant]
     Active Substance: MIRTAZAPINE
     Indication: Affective disorder
     Dosage: 45 MILLIGRAM, QD (0-0-1)
  4. LORAZEPAM [Concomitant]
     Active Substance: LORAZEPAM
     Indication: Affective disorder
     Dosage: 2 MILLIGRAM, QD (0-0-1)
  5. LORMETAZEPAM [Concomitant]
     Active Substance: LORMETAZEPAM
     Indication: Affective disorder
     Dosage: 2 MILLIGRAM, QD (0-0-0-1)

REACTIONS (2)
  - Neutropenia [Unknown]
  - Off label use [Unknown]
